FAERS Safety Report 11935024 (Version 1)
Quarter: 2016Q1

REPORT INFORMATION
  Report Type: Spontaneous
  Country: US (occurrence: None)
  Receive Date: 20160120
  Receipt Date: 20160120
  Transmission Date: 20160526
  Serious: Yes (Life-Threatening)
  Sender: FDA-Public Use
  Company Number: None

PATIENT
  Age: 64 Year
  Sex: Male
  Weight: 184 kg

DRUGS (9)
  1. VYTORIN [Concomitant]
     Active Substance: EZETIMIBE\SIMVASTATIN
  2. METFORMIN [Concomitant]
     Active Substance: METFORMIN HYDROCHLORIDE
  3. NEXIUM [Concomitant]
     Active Substance: ESOMEPRAZOLE MAGNESIUM
  4. LISINOPRIL. [Suspect]
     Active Substance: LISINOPRIL
     Indication: BLOOD PRESSURE MEASUREMENT
     Dosage: 1 PILL, ONCE DAILY, TAKEN BY MOUTH??ABOUT 20 YEARS
     Route: 048
  5. COQ 10 [Concomitant]
     Active Substance: UBIDECARENONE
  6. INNVOKANA [Concomitant]
  7. VALSARTAN. [Concomitant]
     Active Substance: VALSARTAN
  8. TRADJENTA [Concomitant]
     Active Substance: LINAGLIPTIN
  9. VITAMIN D3 [Concomitant]
     Active Substance: CHOLECALCIFEROL

REACTIONS (2)
  - Angioedema [None]
  - Dyspnoea [None]

NARRATIVE: CASE EVENT DATE: 20160113
